FAERS Safety Report 20696284 (Version 1)
Quarter: 2022Q2

REPORT INFORMATION
  Report Type: Spontaneous
  Country: US (occurrence: None)
  Receive Date: 20220409
  Receipt Date: 20220409
  Transmission Date: 20220721
  Serious: Yes (Death, Hospitalization)
  Sender: FDA-Public Use
  Company Number: None

PATIENT
  Age: 3 Year
  Sex: Male
  Weight: 13.8 kg

DRUGS (5)
  1. CARBOPLATIN [Suspect]
     Active Substance: CARBOPLATIN
     Dates: end: 20210611
  2. CYCLOPHOSPHAMIDE [Suspect]
     Active Substance: CYCLOPHOSPHAMIDE
     Dates: end: 20210418
  3. ETOPOSIDE [Suspect]
     Active Substance: ETOPOSIDE
     Dates: end: 20210611
  4. MELPHALAN [Suspect]
     Active Substance: MELPHALAN
     Dates: end: 20210610
  5. THIOTEPA [Suspect]
     Active Substance: THIOTEPA
     Dates: end: 20210415

REACTIONS (2)
  - General physical health deterioration [None]
  - Multi-organ disorder [None]

NARRATIVE: CASE EVENT DATE: 20210818
